FAERS Safety Report 18935215 (Version 24)
Quarter: 2023Q2

REPORT INFORMATION
  Report Type: Report from Study
  Country: CO (occurrence: CO)
  Receive Date: 20210224
  Receipt Date: 20230628
  Transmission Date: 20230721
  Serious: Yes (Hospitalization, Other)
  Sender: FDA-Public Use
  Company Number: CO-TAKEDA-CO201932333

PATIENT
  Age: 78 Year
  Sex: Male
  Weight: 83.9 kg

DRUGS (25)
  1. ICATIBANT [Suspect]
     Active Substance: ICATIBANT ACETATE
     Indication: Hereditary angioedema
     Dosage: UNK
     Route: 058
     Dates: start: 2018
  2. ICATIBANT [Suspect]
     Active Substance: ICATIBANT ACETATE
     Indication: Hereditary angioedema
     Dosage: UNK
     Route: 058
     Dates: start: 2018
  3. ICATIBANT [Suspect]
     Active Substance: ICATIBANT ACETATE
     Dosage: UNK
     Route: 058
     Dates: start: 2018
  4. ICATIBANT [Suspect]
     Active Substance: ICATIBANT ACETATE
     Dosage: UNK
     Route: 058
     Dates: start: 2018
  5. ICATIBANT [Suspect]
     Active Substance: ICATIBANT ACETATE
     Dosage: UNK
     Route: 058
     Dates: start: 2018
  6. ICATIBANT [Suspect]
     Active Substance: ICATIBANT ACETATE
     Dosage: UNK
     Route: 058
     Dates: start: 2018
  7. ICATIBANT [Suspect]
     Active Substance: ICATIBANT ACETATE
     Dosage: UNK, Q6HR
     Route: 058
     Dates: start: 2018
  8. ICATIBANT [Suspect]
     Active Substance: ICATIBANT ACETATE
     Dosage: UNK, Q6HR
     Route: 058
     Dates: start: 2018
  9. ICATIBANT [Suspect]
     Active Substance: ICATIBANT ACETATE
     Dosage: UNK
     Route: 058
     Dates: start: 20190925, end: 20190925
  10. ICATIBANT [Suspect]
     Active Substance: ICATIBANT ACETATE
     Dosage: UNK
     Route: 058
     Dates: start: 20190925, end: 20190925
  11. ICATIBANT [Suspect]
     Active Substance: ICATIBANT ACETATE
     Dosage: UNK
     Route: 058
     Dates: start: 20191124, end: 20191124
  12. ICATIBANT [Suspect]
     Active Substance: ICATIBANT ACETATE
     Dosage: UNK
     Route: 058
     Dates: start: 20191124, end: 20191124
  13. ICATIBANT [Suspect]
     Active Substance: ICATIBANT ACETATE
     Dosage: UNK
     Route: 058
     Dates: start: 20200612
  14. ICATIBANT [Suspect]
     Active Substance: ICATIBANT ACETATE
     Dosage: UNK
     Route: 058
     Dates: start: 20200612
  15. ICATIBANT [Suspect]
     Active Substance: ICATIBANT ACETATE
     Dosage: UNK
     Route: 058
     Dates: start: 20200808, end: 20200808
  16. ICATIBANT [Suspect]
     Active Substance: ICATIBANT ACETATE
     Dosage: UNK
     Route: 058
     Dates: start: 20200808, end: 20200808
  17. ICATIBANT [Suspect]
     Active Substance: ICATIBANT ACETATE
     Dosage: UNK
     Route: 058
     Dates: start: 20200908
  18. ICATIBANT [Suspect]
     Active Substance: ICATIBANT ACETATE
     Dosage: UNK
     Route: 058
     Dates: start: 20200908
  19. ICATIBANT [Suspect]
     Active Substance: ICATIBANT ACETATE
     Dosage: 1 DOSAGE FORM
     Route: 058
  20. ICATIBANT [Suspect]
     Active Substance: ICATIBANT ACETATE
     Dosage: 1 DOSAGE FORM
     Route: 058
  21. ICATIBANT [Suspect]
     Active Substance: ICATIBANT ACETATE
     Dosage: UNK, Q6HR
     Route: 058
  22. ICATIBANT [Suspect]
     Active Substance: ICATIBANT ACETATE
     Dosage: UNK, Q6HR
     Route: 058
  23. TRANEXAMIC ACID [Concomitant]
     Active Substance: TRANEXAMIC ACID
     Indication: Prophylaxis
     Dosage: 1 DOSAGE FORM, QD
     Route: 048
  24. INSULIN NOS [Concomitant]
     Active Substance: INSULIN NOS
     Dosage: UNK
     Route: 058
  25. METFORMIN HYDROCHLORIDE [Concomitant]
     Active Substance: METFORMIN HYDROCHLORIDE
     Dosage: UNK UNK, QD
     Route: 048

REACTIONS (13)
  - Dyspnoea [Recovered/Resolved]
  - Fatigue [Recovered/Resolved]
  - Asthenia [Recovered/Resolved]
  - Vascular occlusion [Recovered/Resolved]
  - Respiratory disorder [Not Recovered/Not Resolved]
  - General physical health deterioration [Recovered/Resolved]
  - Type 2 diabetes mellitus [Unknown]
  - Myocardial infarction [Recovered/Resolved]
  - Chest pain [Recovered/Resolved]
  - Hypertension [Unknown]
  - Weight increased [Unknown]
  - Body height increased [Unknown]
  - Obesity [Unknown]

NARRATIVE: CASE EVENT DATE: 20210723
